FAERS Safety Report 4384139-5 (Version None)
Quarter: 2004Q2

REPORT INFORMATION
  Report Type: 
  Country: None (occurrence: None)
  Receive Date: 20040621
  Receipt Date: 20040609
  Transmission Date: 20050107
  Serious: Yes (Hospitalization)
  Sender: FDA-Public Use
  Company Number: US-JNJFOC-20040602968

PATIENT
  Age: 55 Year
  Sex: Female

DRUGS (5)
  1. TOPAMAX [Suspect]
     Indication: MIGRAINE
     Dosage: ORAL
     Route: 048
     Dates: start: 20020101
  2. NEURONTIN [Concomitant]
  3. KLONOPIN [Concomitant]
  4. ZOLOFT [Concomitant]
  5. IMITREX [Concomitant]

REACTIONS (2)
  - MIGRAINE [None]
  - STRESS SYMPTOMS [None]
